FAERS Safety Report 5299716-7 (Version None)
Quarter: 2007Q2

REPORT INFORMATION
  Report Type: 
  Country: None (occurrence: None)
  Receive Date: 20070410
  Receipt Date: 20070329
  Transmission Date: 20071010
  Serious: Yes (Hospitalization)
  Sender: FDA-Public Use
  Company Number: 2007AL001281

PATIENT
  Age: 52 Year
  Sex: Male

DRUGS (15)
  1. IBUPROFEN [Suspect]
     Indication: PODAGRA
  2. WARFARIN [Concomitant]
  3. TIAPROFENIC ACID [Concomitant]
  4. ALLOPURINOL [Concomitant]
  5. ERGOCALCIFEROL [Concomitant]
  6. FUROSEMIDE [Concomitant]
  7. NIFEDIPINE [Concomitant]
  8. CETIRIZINE HCL [Concomitant]
  9. CALCIUM CARBONATE [Concomitant]
  10. SIMVASTATIN [Concomitant]
  11. METOPROLOL SUCCINATE [Concomitant]
  12. VITAMIN B [Concomitant]
  13. FERROUS FUMARATE [Concomitant]
  14. FOLIC ACID [Concomitant]
  15. DARBEPOETIN ALFA [Concomitant]

REACTIONS (3)
  - COAGULATION TIME PROLONGED [None]
  - DRUG INTERACTION [None]
  - INTERNATIONAL NORMALISED RATIO INCREASED [None]
